FAERS Safety Report 15012997 (Version 1)
Quarter: 2018Q2

REPORT INFORMATION
  Report Type: Spontaneous
  Country: None (occurrence: IT)
  Receive Date: 20180614
  Receipt Date: 20180614
  Transmission Date: 20180711
  Serious: Yes (Death, Life-Threatening)
  Sender: FDA-Public Use
  Company Number: IT-MEDAC PHARMA, INC.-2049441

PATIENT
  Age: 70 Year
  Sex: Female

DRUGS (3)
  1. MEDIROL (GLIMEPIRIDE) [Suspect]
     Active Substance: GLIMEPIRIDE
  2. METHOTREXATE (METHOTREXATE SODIUM) [Suspect]
     Active Substance: METHOTREXATE SODIUM
     Indication: RHEUMATOID ARTHRITIS
  3. OLUMIANT [Suspect]
     Active Substance: BARICITINIB
     Route: 048
     Dates: start: 20180118, end: 20180306

REACTIONS (1)
  - Acute respiratory distress syndrome [Fatal]
